FAERS Safety Report 24792970 (Version 1)
Quarter: 2024Q4

REPORT INFORMATION
  Report Type: Spontaneous
  Country: US (occurrence: US)
  Receive Date: 20241231
  Receipt Date: 20241231
  Transmission Date: 20250115
  Serious: Yes (Other)
  Sender: HIKMA
  Company Number: US-HIKMA PHARMACEUTICALS USA INC.-US-H14001-24-11900

PATIENT
  Age: 85 Year
  Sex: Male

DRUGS (1)
  1. DOCETAXEL [Suspect]
     Active Substance: DOCETAXEL
     Indication: Prostate cancer metastatic
     Dosage: 3 DOSAGE FORM
     Route: 042

REACTIONS (3)
  - Retinal artery occlusion [Recovering/Resolving]
  - Pupillary reflex impaired [Recovering/Resolving]
  - Optic ischaemic neuropathy [Recovering/Resolving]
